FAERS Safety Report 10234205 (Version 1)
Quarter: 2014Q2

REPORT INFORMATION
  Report Type: Spontaneous
  Country: DE (occurrence: JP)
  Receive Date: 20140612
  Receipt Date: 20140612
  Transmission Date: 20141212
  Serious: Yes (Death)
  Sender: FDA-Public Use
  Company Number: JP-FRI-1000068026

PATIENT
  Age: 91 Year
  Sex: Female

DRUGS (7)
  1. MEMANTINE [Suspect]
     Indication: DEMENTIA
     Dosage: 5 MG
     Route: 048
     Dates: start: 20140516, end: 20140518
  2. MAGMITT [Concomitant]
     Dates: end: 20140518
  3. GASTER D [Concomitant]
     Dates: end: 20140518
  4. CELECOX [Concomitant]
     Dates: end: 20140518
  5. DIART [Concomitant]
     Dates: end: 20140518
  6. ALLEGRA [Concomitant]
     Dates: start: 20140511, end: 20140518
  7. AMOBAN [Concomitant]
     Dates: end: 20140518

REACTIONS (1)
  - Completed suicide [Fatal]
